FAERS Safety Report 12438517 (Version 1)
Quarter: 2016Q2

REPORT INFORMATION
  Report Type: Report from Study
  Country: US (occurrence: US)
  Receive Date: 20160606
  Receipt Date: 20160606
  Transmission Date: 20160815
  Serious: No
  Sender: FDA-Public Use
  Company Number: US-009507513-1606USA001411

PATIENT
  Sex: Male

DRUGS (1)
  1. PEMBROLIZUMAB. [Suspect]
     Active Substance: PEMBROLIZUMAB
     Indication: MALIGNANT MELANOMA

REACTIONS (4)
  - Middle insomnia [Unknown]
  - Abnormal behaviour [Unknown]
  - Malaise [Unknown]
  - Fatigue [Unknown]
